FAERS Safety Report 4766852-0 (Version None)
Quarter: 2005Q3

REPORT INFORMATION
  Report Type: 
  Country: None (occurrence: None)
  Receive Date: 20050909
  Receipt Date: 20050902
  Transmission Date: 20060218
  Serious: Yes (Hospitalization)
  Sender: FDA-Public Use
  Company Number: LNL-100121-NL

PATIENT
  Age: 3 Year
  Sex: Male

DRUGS (6)
  1. ROCURONIUM [Suspect]
     Indication: MUSCLE RELAXANT THERAPY
     Dosage: 9 MG ONCE INTRAVENOUS (NOS)
     Route: 042
     Dates: start: 19970624, end: 19970624
  2. NITROUS OXIDE [Suspect]
     Indication: MUSCLE RELAXANT THERAPY
     Dates: start: 19970624
  3. HALOTHANE [Suspect]
     Indication: MUSCLE RELAXANT THERAPY
     Dates: start: 19970624
  4. PARACETAMOL [Suspect]
     Indication: PAIN
     Dosage: 375 MG RECTAL
     Route: 054
     Dates: start: 19970624
  5. ATROPINE SULFATE [Suspect]
     Indication: MUSCLE RELAXANT THERAPY
     Dates: start: 19970624
  6. NEOSTIGMINE [Suspect]
     Indication: MUSCLE RELAXANT THERAPY
     Dates: start: 19970624

REACTIONS (1)
  - SOMNOLENCE [None]
